FAERS Safety Report 7113074-4 (Version None)
Quarter: 2010Q4

REPORT INFORMATION
  Report Type: 
  Country: None (occurrence: None)
  Receive Date: 20101119
  Receipt Date: 20101111
  Transmission Date: 20110411
  Serious: Yes (Other)
  Sender: FDA-Public Use
  Company Number: US-US-EMD SERONO, INC.-7022207

PATIENT
  Sex: Female
  Weight: 68 kg

DRUGS (4)
  1. REBIF [Suspect]
     Indication: MULTIPLE SCLEROSIS
     Route: 058
     Dates: start: 20100621
  2. VALIUM [Concomitant]
     Indication: VERTIGO
  3. AMBIEN [Concomitant]
     Indication: INSOMNIA
  4. ADVIL [Concomitant]
     Indication: ADNEXA UTERI PAIN

REACTIONS (4)
  - HEPATIC ENZYME INCREASED [None]
  - INJECTION SITE PAIN [None]
  - MUSCULOSKELETAL PAIN [None]
  - OVARIAN CYST [None]
